FAERS Safety Report 8120128-2 (Version None)
Quarter: 2012Q1

REPORT INFORMATION
  Report Type: 
  Country: None (occurrence: None)
  Receive Date: 20120207
  Receipt Date: 20120125
  Transmission Date: 20120608
  Serious: Yes (Hospitalization)
  Sender: FDA-Public Use
  Company Number: NL-MEDIMMUNE-MEDI-0014749

PATIENT
  Sex: Female
  Weight: 10.12 kg

DRUGS (1)
  1. SYNAGIS [Suspect]
     Route: 030
     Dates: start: 20111007, end: 20111230

REACTIONS (2)
  - PYELONEPHRITIS [None]
  - PYREXIA [None]
